FAERS Safety Report 10494972 (Version 1)
Quarter: 2014Q3

REPORT INFORMATION
  Report Type: Spontaneous
  Country: US (occurrence: None)
  Receive Date: 20140815
  Receipt Date: 20140815
  Transmission Date: 20150326
  Serious: Yes (Other)
  Sender: FDA-Public Use
  Company Number: ADR-2014-00911

PATIENT
  Sex: Male

DRUGS (2)
  1. BACLOFEN INTRATHECAL [Suspect]
     Active Substance: BACLOFEN
     Indication: SPINAL PAIN
  2. CLONIDINE. [Suspect]
     Active Substance: CLONIDINE
     Dosage: 0.35204 MG/DAY

REACTIONS (3)
  - Spinal cord injury [None]
  - Fall [None]
  - Unresponsive to stimuli [None]
